FAERS Safety Report 7366460-1 (Version None)
Quarter: 2011Q1

REPORT INFORMATION
  Report Type: 
  Country: None (occurrence: None)
  Receive Date: 20110317
  Receipt Date: 20110317
  Transmission Date: 20110831
  Serious: Yes (Life-Threatening)
  Sender: FDA-Public Use
  Company Number: None

PATIENT
  Age: 80 Year
  Sex: Male

DRUGS (1)
  1. METOCLOPRAMIDE [Suspect]
     Indication: GASTRIC DISORDER
     Dosage: 5MG BID PO
     Route: 048
     Dates: start: 20110306, end: 20110306

REACTIONS (1)
  - METHAEMOGLOBINAEMIA [None]
